FAERS Safety Report 25780454 (Version 1)
Quarter: 2025Q3

REPORT INFORMATION
  Report Type: Spontaneous
  Country: JP (occurrence: JP)
  Receive Date: 20250909
  Receipt Date: 20250909
  Transmission Date: 20251020
  Serious: Yes (Death, Other)
  Sender: AMGEN
  Company Number: JP-AMGEN-JPNSP2025177009

PATIENT

DRUGS (2)
  1. BEVACIZUMAB [Suspect]
     Active Substance: BEVACIZUMAB
     Indication: Hepatocellular carcinoma
     Route: 065
  2. ATEZOLIZUMAB [Concomitant]
     Active Substance: ATEZOLIZUMAB
     Indication: Hepatocellular carcinoma
     Route: 065

REACTIONS (23)
  - Hepatocellular carcinoma [Fatal]
  - Cardiac failure [Fatal]
  - Cholangitis [Fatal]
  - Lung neoplasm malignant [Fatal]
  - Bile duct stenosis [Fatal]
  - Radiation pneumonitis [Unknown]
  - Ascites [Unknown]
  - Gastric ulcer [Unknown]
  - Off label use [Unknown]
  - Pleurisy [Unknown]
  - Dermatitis [Unknown]
  - Pigmentation disorder [Unknown]
  - Erythema [Unknown]
  - Rib fracture [Unknown]
  - Myositis [Unknown]
  - Skin induration [Unknown]
  - Hepatic function abnormal [Unknown]
  - Pleural effusion [Unknown]
  - Gastritis [Unknown]
  - Pain [Unknown]
  - Nausea [Unknown]
  - Fatigue [Unknown]
  - Decreased appetite [Unknown]
